FAERS Safety Report 13354014 (Version 5)
Quarter: 2017Q3

REPORT INFORMATION
  Report Type: Spontaneous
  Country: US (occurrence: US)
  Receive Date: 20170321
  Receipt Date: 20170724
  Transmission Date: 20171127
  Serious: No
  Sender: FDA-Public Use
  Company Number: US-PFIZER INC-2017116816

PATIENT
  Age: 84 Year
  Sex: Female
  Weight: 65.32 kg

DRUGS (5)
  1. IBRANCE [Suspect]
     Active Substance: PALBOCICLIB
     Dosage: 125 MG, DAILY
     Route: 048
     Dates: start: 20170123
  2. LETROZOLE. [Suspect]
     Active Substance: LETROZOLE
     Indication: NEOPLASM MALIGNANT
     Dosage: 2.5 MG, DAILY
     Dates: start: 201601
  3. FASLODEX [Concomitant]
     Active Substance: FULVESTRANT
     Indication: BREAST CANCER METASTATIC
     Dosage: 500 MG, (ONCE MONTHLY)
     Route: 030
     Dates: start: 201701
  4. LEVOTHYROXINE. [Concomitant]
     Active Substance: LEVOTHYROXINE
     Indication: THYROID DISORDER
     Dosage: 112 UG, 1X/DAY
  5. IBRANCE [Suspect]
     Active Substance: PALBOCICLIB
     Indication: BREAST CANCER METASTATIC
     Dosage: 125 MG, 1X/DAY (TAKING IBRANCE 3 WEEKS OUT OF THE MONTH)
     Dates: start: 201601

REACTIONS (4)
  - Alopecia [Not Recovered/Not Resolved]
  - Body height abnormal [Unknown]
  - Neoplasm progression [Unknown]
  - Memory impairment [Not Recovered/Not Resolved]
